FAERS Safety Report 15549136 (Version 1)
Quarter: 2018Q4

REPORT INFORMATION
  Report Type: Spontaneous
  Country: US (occurrence: US)
  Receive Date: 20181025
  Receipt Date: 20181025
  Transmission Date: 20190205
  Serious: No
  Sender: FDA-Public Use
  Company Number: US-TEVA-2018-US-966590

PATIENT

DRUGS (1)
  1. ENOXAPARIN [Suspect]
     Active Substance: ENOXAPARIN
     Dosage: DOSE STRENGTH : 60 MG/ 0.6 ML
     Route: 065

REACTIONS (2)
  - Injection site haemorrhage [Unknown]
  - Syringe issue [Unknown]
